FAERS Safety Report 4498105-2 (Version None)
Quarter: 2004Q4

REPORT INFORMATION
  Report Type: 
  Country: None (occurrence: None)
  Receive Date: 20040927
  Receipt Date: 20040726
  Transmission Date: 20050328
  Serious: No
  Sender: FDA-Public Use
  Company Number: USA040773596

PATIENT
  Age: 13 Year
  Sex: Female

DRUGS (2)
  1. STRATTERA (ATOMOXETINE HYDROCLORIDE) [Suspect]
     Indication: ATTENTION DEFICIT/HYPERACTIVITY DISORDER
     Dosage: 40 MG DAY
     Dates: start: 20030701
  2. VITAMINS NOS [Concomitant]

REACTIONS (5)
  - ABNORMAL BEHAVIOUR [None]
  - AGGRESSION [None]
  - DEPRESSION [None]
  - FLAT AFFECT [None]
  - PERSONALITY CHANGE [None]
